FAERS Safety Report 5411734-4 (Version None)
Quarter: 2007Q3

REPORT INFORMATION
  Report Type: 
  Country: None (occurrence: None)
  Receive Date: 20070813
  Receipt Date: 20070803
  Transmission Date: 20080115
  Serious: Yes (Other)
  Sender: FDA-Public Use
  Company Number: PHNR2007AU00986

PATIENT
  Age: 78 Year
  Sex: Female

DRUGS (12)
  1. TRANSDERM-NITRO [Suspect]
     Indication: ANGINA PECTORIS
     Dosage: 25 MG, QD
     Route: 062
  2. ACTILAX [Concomitant]
     Dosage: 20MLS NOCTE PRN
  3. CHLOROMYCETIN [Concomitant]
     Dosage: EVENING BOTH SIDES
  4. DILTIAZEM [Concomitant]
     Dosage: 1 MANE
  5. HYDROCHLOROTHIAZIDE [Concomitant]
     Dosage: 1 MANE
  6. LACRI-LUBE [Concomitant]
     Dosage: PRN
  7. NASONEX [Concomitant]
     Dosage: 1 DAILY BOTH SIDES
  8. NEXIUM [Concomitant]
     Dosage: 40 MG, QD
  9. PANAMAX [Concomitant]
     Dosage: 200MG 3 TIMES DAILY PRN
  10. PROCHLORPERAZINE [Concomitant]
     Dosage: 5MG 3 TIMES DAILY IF REQUIRED
  11. SYSTANE [Concomitant]
     Dosage: AS DIRECTED
  12. VAGIFEM [Concomitant]
     Dosage: DAILY 1 PESSARY 3 WEEKLY

REACTIONS (2)
  - ERYTHEMA [None]
  - MALAISE [None]
